FAERS Safety Report 24309968 (Version 2)
Quarter: 2024Q3

REPORT INFORMATION
  Report Type: Spontaneous
  Country: US (occurrence: US)
  Receive Date: 20240912
  Receipt Date: 20240912
  Transmission Date: 20241016
  Serious: Yes (Other)
  Sender: AMGEN
  Company Number: US-AMGEN-USASP2024179503

PATIENT

DRUGS (2)
  1. IMDELLTRA [Suspect]
     Active Substance: TARLATAMAB-DLLE
     Indication: Product used for unknown indication
     Dosage: 1 MILLIGRAM, FIRST DOSE
     Route: 065
     Dates: start: 20240827
  2. IMDELLTRA [Suspect]
     Active Substance: TARLATAMAB-DLLE
     Dosage: 10 MILLIGRAM, SECOND DOSE
     Route: 065
     Dates: start: 20240903

REACTIONS (1)
  - Cytokine release syndrome [Recovered/Resolved]

NARRATIVE: CASE EVENT DATE: 20240827
